FAERS Safety Report 19738423 (Version 1)
Quarter: 2021Q3

REPORT INFORMATION
  Report Type: Spontaneous
  Country: NO (occurrence: NO)
  Receive Date: 20210823
  Receipt Date: 20210823
  Transmission Date: 20211014
  Serious: Yes (Hospitalization, Other)
  Sender: FDA-Public Use
  Company Number: NO-OTSUKA-2021_028881

PATIENT
  Age: 24 Year
  Sex: Male
  Weight: 65 kg

DRUGS (1)
  1. ABILIFY MAINTENA [Suspect]
     Active Substance: ARIPIPRAZOLE
     Indication: PSYCHOTIC DISORDER
     Dosage: 400 MG, QM
     Route: 030
     Dates: start: 2018

REACTIONS (11)
  - Dyskinesia [Unknown]
  - Anosmia [Unknown]
  - Discomfort [Recovering/Resolving]
  - Illusion [Not Recovered/Not Resolved]
  - Discomfort [Unknown]
  - Tongue movement disturbance [Unknown]
  - Product use in unapproved indication [Unknown]
  - Hallucination, auditory [Unknown]
  - Mobility decreased [Unknown]
  - Speech disorder [Unknown]
  - Taste disorder [Unknown]

NARRATIVE: CASE EVENT DATE: 202104
